FAERS Safety Report 11587481 (Version 1)
Quarter: 2015Q4

REPORT INFORMATION
  Report Type: Spontaneous
  Country: US (occurrence: US)
  Receive Date: 20151001
  Receipt Date: 20151001
  Transmission Date: 20160304
  Serious: No
  Sender: FDA-Public Use
  Company Number: US-B.I. PHARMACEUTICALS,INC./RIDGEFIELD-2015-BI-51873BP

PATIENT
  Age: 80 Year
  Sex: Male
  Weight: 64 kg

DRUGS (2)
  1. SPIRIVA [Suspect]
     Active Substance: TIOTROPIUM BROMIDE MONOHYDRATE
     Dosage: 18 MCG
     Route: 048
     Dates: start: 20150919, end: 20150919
  2. SPIRIVA [Suspect]
     Active Substance: TIOTROPIUM BROMIDE MONOHYDRATE
     Indication: INTERSTITIAL LUNG DISEASE
     Dosage: 18 MCG
     Route: 055
     Dates: start: 2010

REACTIONS (4)
  - Off label use [Unknown]
  - Intervertebral disc disorder [Not Recovered/Not Resolved]
  - Back injury [Not Recovered/Not Resolved]
  - Incorrect route of drug administration [Recovered/Resolved]

NARRATIVE: CASE EVENT DATE: 2010
